FAERS Safety Report 5097064-1 (Version None)
Quarter: 2006Q3

REPORT INFORMATION
  Report Type: 
  Country: None (occurrence: None)
  Receive Date: 20060901
  Receipt Date: 20060822
  Transmission Date: 20061208
  Serious: Yes (Other)
  Sender: FDA-Public Use
  Company Number: 2006103166

PATIENT
  Age: 45 Year
  Sex: Male

DRUGS (6)
  1. LIPITOR [Suspect]
     Indication: DRUG USE FOR UNKNOWN INDICATION
     Dosage: 40 MG, ORAL
     Route: 048
     Dates: start: 20060301, end: 20060411
  2. PHENYTOIN [Suspect]
     Indication: DRUG USE FOR UNKNOWN INDICATION
  3. TEGRETOL [Concomitant]
  4. ASPIRIN [Concomitant]
  5. CLOBAZAM (CLOBAZAM) [Concomitant]
  6. CLOPIDOGREL [Concomitant]

REACTIONS (6)
  - CONDITION AGGRAVATED [None]
  - DRUG DOSE OMISSION [None]
  - DRUG INTERACTION [None]
  - EPILEPSY [None]
  - INCORRECT DOSE ADMINISTERED [None]
  - PETIT MAL EPILEPSY [None]
